FAERS Safety Report 14012720 (Version 1)
Quarter: 2017Q3

REPORT INFORMATION
  Report Type: Spontaneous
  Country: PK (occurrence: PK)
  Receive Date: 20170926
  Receipt Date: 20170926
  Transmission Date: 20171128
  Serious: Yes (Other)
  Sender: FDA-Public Use
  Company Number: PK-SA-2017SA175056

PATIENT
  Sex: Female

DRUGS (2)
  1. LANTUS SOLOSTAR [Suspect]
     Active Substance: INSULIN GLARGINE
     Indication: HYPERGLYCAEMIA
     Route: 058
  2. SOLOSTAR [Suspect]
     Active Substance: DEVICE
     Indication: HYPERGLYCAEMIA

REACTIONS (5)
  - Growth retardation [Unknown]
  - Decreased appetite [Unknown]
  - Glycosylated haemoglobin increased [Unknown]
  - Polyuria [Unknown]
  - Blood glucose increased [Unknown]
